FAERS Safety Report 20225627 (Version 1)
Quarter: 2021Q4

REPORT INFORMATION
  Report Type: Other
  Country: MG (occurrence: None)
  Receive Date: 20211224
  Receipt Date: 20211224
  Transmission Date: 20220303
  Serious: Yes (Death, Hospitalization, Other)
  Sender: FDA-Public Use
  Company Number: MG-Saptalis Pharmaceuticals,LLC-000151

PATIENT
  Age: 30 Year
  Sex: Female

DRUGS (8)
  1. ERYTHROMYCIN [Suspect]
     Active Substance: ERYTHROMYCIN
     Indication: Product used for unknown indication
     Route: 048
  2. METHOTREXATE [Suspect]
     Active Substance: METHOTREXATE
     Indication: Ectopic pregnancy
     Dosage: TOTAL DOSE OF 75 MG (1 MG/KG)
     Route: 030
  3. CHLORHEXIDINE [Suspect]
     Active Substance: CHLORHEXIDINE
     Indication: Product used for unknown indication
  4. FUSIDIC ACID [Suspect]
     Active Substance: FUSIDIC ACID
     Indication: Product used for unknown indication
     Dosage: 2%
     Route: 003
  5. LORATADINE [Suspect]
     Active Substance: LORATADINE
     Indication: Product used for unknown indication
     Route: 048
  6. AMPHOTERICIN B [Suspect]
     Active Substance: AMPHOTERICIN B
     Indication: Product used for unknown indication
     Route: 048
  7. DEXAMETHASONE [Suspect]
     Active Substance: DEXAMETHASONE
     Indication: Product used for unknown indication
     Route: 042
  8. OMEPRAZOLE [Suspect]
     Active Substance: OMEPRAZOLE
     Indication: Product used for unknown indication
     Route: 042

REACTIONS (4)
  - General physical health deterioration [Unknown]
  - Multiple organ dysfunction syndrome [Fatal]
  - Exposure during pregnancy [Unknown]
  - Drug ineffective [Unknown]
